FAERS Safety Report 8671131 (Version 2)
Quarter: 2013Q3

REPORT INFORMATION
  Report Type: Spontaneous
  Country: US (occurrence: US)
  Receive Date: 20120718
  Receipt Date: 20130802
  Transmission Date: 20140515
  Serious: Yes (Death, Other)
  Sender: FDA-Public Use
  Company Number: US-BRISTOL-MYERS SQUIBB COMPANY-16595480

PATIENT
  Age: 6 Decade
  Sex: Male

DRUGS (5)
  1. COUMADIN [Suspect]
  2. CAPTOPRIL [Suspect]
  3. PRADAXA [Suspect]
     Dosage: 300MG
     Route: 048
     Dates: end: 20120422
  4. PLAVIX [Suspect]
     Route: 048
  5. ASPIRIN [Suspect]

REACTIONS (2)
  - Gastrointestinal haemorrhage [Fatal]
  - Adverse event [Unknown]
